FAERS Safety Report 9045708 (Version 1)
Quarter: 2013Q1

REPORT INFORMATION
  Report Type: Report from Study
  Country: US (occurrence: US)
  Receive Date: 20130131
  Receipt Date: 20130131
  Transmission Date: 20140127
  Serious: No
  Sender: FDA-Public Use
  Company Number: US-ABBOTT-12P-163-1013447-00

PATIENT
  Age: 38 Year
  Sex: Female

DRUGS (16)
  1. HUMIRA PEN [Suspect]
     Indication: CROHN^S DISEASE
     Dates: start: 20121004
  2. DILANTIN [Concomitant]
     Indication: GRAND MAL CONVULSION
     Dosage: 100 MG X 3 TABS IN AM AND 4 TABS AT NIGHT
  3. SINGULAIR [Concomitant]
     Indication: ASTHMA
     Dosage: AT BEDTIME
  4. SINGULAIR [Concomitant]
     Indication: HYPERSENSITIVITY
  5. PRILOSEC [Concomitant]
     Indication: GASTROOESOPHAGEAL REFLUX DISEASE
  6. SEROQUEL [Concomitant]
     Indication: INSOMNIA
     Dosage: AT BEDTIME
  7. HYDROCODONE [Concomitant]
     Indication: ARTHRALGIA
     Dosage: 1 TAB EVERY 4-6 HRS, AS NEEDED
  8. HYDROCODONE [Concomitant]
     Indication: BACK PAIN
  9. B-12 [Concomitant]
     Indication: CROHN^S DISEASE
  10. LASIX [Concomitant]
     Indication: OEDEMA PERIPHERAL
     Dosage: 20 MG DAILY
  11. PROAIR [Concomitant]
     Indication: ASTHMA
  12. REMERON [Concomitant]
     Indication: INSOMNIA
     Dosage: AT BEDTIME
  13. PHENERGAN [Concomitant]
     Indication: NAUSEA
  14. METHOCARBAMOL [Concomitant]
     Indication: MYALGIA
     Dosage: AS NEEDED
  15. PAXIL [Concomitant]
     Indication: DEPRESSION
     Dosage: 20 MG DAILY
  16. DIAZEPAM [Concomitant]
     Indication: ANXIETY
     Dosage: AS NEEDED

REACTIONS (3)
  - Feeling cold [Not Recovered/Not Resolved]
  - Pyrexia [Not Recovered/Not Resolved]
  - Upper respiratory tract congestion [Not Recovered/Not Resolved]
